FAERS Safety Report 15544098 (Version 2)
Quarter: 2018Q4

REPORT INFORMATION
  Report Type: Report from Study
  Country: None (occurrence: US)
  Receive Date: 20181024
  Receipt Date: 20181211
  Transmission Date: 20190205
  Serious: Yes (Hospitalization, Other)
  Sender: FDA-Public Use
  Company Number: US-ABBVIE-18K-163-2519253-00

PATIENT
  Age: 71 Year
  Sex: Female
  Weight: 69.92 kg

DRUGS (4)
  1. METOPROLOL. [Concomitant]
     Active Substance: METOPROLOL
     Indication: HYPERTENSION
  2. HUMIRA [Suspect]
     Active Substance: ADALIMUMAB
     Indication: COLITIS ULCERATIVE
     Route: 058
     Dates: start: 20160701, end: 20180817
  3. ZANTAC [Concomitant]
     Active Substance: RANITIDINE HYDROCHLORIDE
     Indication: DYSPEPSIA
  4. TRAMADOL. [Concomitant]
     Active Substance: TRAMADOL
     Indication: PAIN

REACTIONS (7)
  - Osteoarthritis [Recovered/Resolved]
  - Rosacea [Unknown]
  - Rash erythematous [Unknown]
  - Sinus disorder [Unknown]
  - Eczema [Unknown]
  - Rash pruritic [Unknown]
  - Dry skin [Unknown]

NARRATIVE: CASE EVENT DATE: 2018
